FAERS Safety Report 16244111 (Version 3)
Quarter: 2019Q2

REPORT INFORMATION
  Report Type: Spontaneous
  Country: MM (occurrence: MM)
  Receive Date: 20190426
  Receipt Date: 20190630
  Transmission Date: 20190711
  Serious: Yes (Death, Hospitalization, Other)
  Sender: FDA-Public Use
  Company Number: MM-JNJFOC-20190430933

PATIENT
  Age: 25 Year
  Sex: Male
  Weight: 37 kg

DRUGS (10)
  1. DELAMANID [Suspect]
     Active Substance: DELAMANID
     Indication: TUBERCULOSIS
     Route: 048
     Dates: start: 20190328
  2. AMOXICLAV BC [Suspect]
     Active Substance: AMOXICILLIN\CLAVULANATE POTASSIUM
     Indication: TUBERCULOSIS
     Route: 048
     Dates: start: 20190328
  3. BEDAQUILINE TABLET [Suspect]
     Active Substance: BEDAQUILINE
     Indication: TUBERCULOSIS
     Dosage: FOR 2 WEEKS, END DATE: /APR/2019
     Route: 048
     Dates: start: 20190328
  4. CLOFAZIMINE [Suspect]
     Active Substance: CLOFAZIMINE
     Indication: TUBERCULOSIS
     Route: 048
     Dates: start: 20190328
  5. CALCIVITA [Concomitant]
     Active Substance: CALCIUM\VITAMINS
     Indication: HYPOCALCAEMIA
     Dosage: STOPPED ON /APR/2019
     Route: 065
     Dates: start: 20190315
  6. IMIPENEM AND CILASTATIN [Suspect]
     Active Substance: CILASTATIN SODIUM\IMIPENEM
     Indication: TUBERCULOSIS
     Route: 042
     Dates: start: 20190328
  7. PYRIDOXINE [Concomitant]
     Active Substance: PYRIDOXINE
     Dosage: STOPPED ON /APR/2019
     Route: 065
     Dates: start: 20190328
  8. LINEZOLID. [Suspect]
     Active Substance: LINEZOLID
     Indication: TUBERCULOSIS
     Route: 048
     Dates: start: 20190328
  9. PARA-AMINOSALICYLIC ACID [Suspect]
     Active Substance: AMINOSALICYLIC ACID
     Indication: TUBERCULOSIS
     Route: 048
     Dates: start: 20190328
  10. BEDAQUILINE TABLET [Suspect]
     Active Substance: BEDAQUILINE
     Dosage: 3 TIMES/WEEK, START DATE: /APR/2019
     Route: 048

REACTIONS (6)
  - Hypokalaemia [Not Recovered/Not Resolved]
  - Ventricular extrasystoles [Recovered/Resolved]
  - Tuberculosis [Fatal]
  - Electrocardiogram QT prolonged [Recovered/Resolved]
  - Epistaxis [Recovered/Resolved]
  - Platelet count decreased [Not Recovered/Not Resolved]

NARRATIVE: CASE EVENT DATE: 20190412
